FAERS Safety Report 4729268-9 (Version None)
Quarter: 2005Q3

REPORT INFORMATION
  Report Type: 
  Country: None (occurrence: None)
  Receive Date: 20050729
  Receipt Date: 20040824
  Transmission Date: 20060218
  Serious: No
  Sender: FDA-Public Use
  Company Number: US-GLAXOSMITHKLINE-A0523315A

PATIENT
  Sex: Female

DRUGS (2)
  1. IMITREX [Suspect]
     Indication: MIGRAINE
     Dosage: 25MG AS REQUIRED
     Route: 048
     Dates: start: 19950101
  2. INDERAL [Concomitant]

REACTIONS (3)
  - DIZZINESS [None]
  - FATIGUE [None]
  - THROAT IRRITATION [None]
